FAERS Safety Report 13699739 (Version 2)
Quarter: 2018Q3

REPORT INFORMATION
  Report Type: Spontaneous
  Country: US (occurrence: US)
  Receive Date: 20170629
  Receipt Date: 20180723
  Transmission Date: 20181010
  Serious: No
  Sender: FDA-Public Use
  Company Number: US-AUROBINDO-AUR-APL-2017-34623

PATIENT
  Sex: Male

DRUGS (1)
  1. DIVALPROEX SODIUM ER [Suspect]
     Active Substance: DIVALPROEX SODIUM
     Indication: AFFECTIVE DISORDER
     Dosage: TWO TABLETS EVERY MONRING AND ONE TABLET EVERY EVENING
     Route: 048

REACTIONS (2)
  - Drug effect decreased [Unknown]
  - Feeling abnormal [Unknown]
